FAERS Safety Report 24128068 (Version 3)
Quarter: 2024Q3

REPORT INFORMATION
  Report Type: Report from Study
  Country: CA (occurrence: CA)
  Receive Date: 20240723
  Receipt Date: 20240830
  Transmission Date: 20241016
  Serious: Yes (Other)
  Sender: JOHNSON AND JOHNSON
  Company Number: CA-JNJFOC-20220820769

PATIENT
  Age: 74 Year
  Sex: Female

DRUGS (6)
  1. REMICADE [Suspect]
     Active Substance: INFLIXIMAB
     Indication: Colitis ulcerative
     Dosage: PRODUCT EXPIRY DATE:28-FEB-2025, EXPIRY DATE: AUG-2025
     Route: 041
  2. REMICADE [Suspect]
     Active Substance: INFLIXIMAB
     Dosage: PRODUCT EXPIRY DATE:28-FEB-2025, EXPIRY DATE: AUG-2025?EXPIRY DATE: NOV2026
     Route: 041
     Dates: start: 20210526
  3. CYANOCOBALAMIN [Concomitant]
     Active Substance: CYANOCOBALAMIN
     Indication: Product used for unknown indication
     Route: 065
     Dates: start: 202205
  4. PAXIL [Concomitant]
     Active Substance: PAROXETINE HYDROCHLORIDE
     Indication: Product used for unknown indication
  5. MINERALS\VITAMINS [Concomitant]
     Active Substance: MINERALS\VITAMINS
  6. PANTOPRAZOLE SODIUM [Concomitant]
     Active Substance: PANTOPRAZOLE SODIUM
     Indication: Product used for unknown indication
     Route: 048

REACTIONS (5)
  - Acoustic neuroma [Unknown]
  - Crohn^s disease [Not Recovered/Not Resolved]
  - Anal incontinence [Unknown]
  - Osteoarthritis [Recovering/Resolving]
  - Constipation [Unknown]

NARRATIVE: CASE EVENT DATE: 20220701
